FAERS Safety Report 9460048 (Version 1)
Quarter: 2013Q3

REPORT INFORMATION
  Report Type: Spontaneous
  Country: US (occurrence: None)
  Receive Date: 20130814
  Receipt Date: 20130814
  Transmission Date: 20140515
  Serious: Yes (Other)
  Sender: FDA-Public Use
  Company Number: None

PATIENT
  Sex: Female
  Weight: 24.04 kg

DRUGS (6)
  1. RISPERIDONE [Suspect]
     Indication: CYTOGENETIC ABNORMALITY
     Dosage: 1MG/1ML VARIES PO?PRIOR TO 2/9/2009
     Route: 048
     Dates: end: 20090209
  2. RISPERIDONE [Suspect]
     Indication: ATTENTION DEFICIT/HYPERACTIVITY DISORDER
     Dosage: 1MG/1ML VARIES PO?PRIOR TO 2/9/2009
     Route: 048
     Dates: end: 20090209
  3. RISPERIDONE [Suspect]
     Dosage: 1MG/1ML VARIES PO?PRIOR TO 2/9/2009
     Route: 048
     Dates: end: 20090209
  4. DAYTRANA [Concomitant]
  5. RISPERDAL [Concomitant]
  6. CLARIDINE [Concomitant]

REACTIONS (3)
  - Abnormal behaviour [None]
  - Affective disorder [None]
  - Irritability [None]
